FAERS Safety Report 4749834-4 (Version None)
Quarter: 2005Q3

REPORT INFORMATION
  Report Type: 
  Country: None (occurrence: None)
  Receive Date: 20050822
  Receipt Date: 20050819
  Transmission Date: 20060218
  Serious: Yes (Hospitalization)
  Sender: FDA-Public Use
  Company Number: JP-SANOFI-SYNTHELABO-F01200501606

PATIENT
  Sex: Male

DRUGS (10)
  1. OXALIPLATIN [Suspect]
     Indication: COLON CANCER
     Dosage: 144.5MG/BODY=85MG/M2 ON DAY 1
     Route: 042
     Dates: start: 20050607, end: 20050607
  2. OXALIPLATIN [Suspect]
     Dosage: 155MG/BODY=91.2MG/M2
     Route: 042
     Dates: start: 20050628, end: 20050628
  3. FLUOROURACIL [Suspect]
     Dosage: 680MG/BODY=400 MG/M2 IV BOLUS D1 THEN 4080MG/BODY=2400MG/M2 AS INFUSION ON D1-2
     Route: 042
     Dates: start: 20050607, end: 20050608
  4. FLUOROURACIL [Suspect]
     Dosage: 750MG/BODY=441.2MG/M2 BOLUS, THEN 4300MG/BODY=2529.4MG/M2 INFUSION
     Route: 042
     Dates: start: 20050628, end: 20050628
  5. CALCIUM LEVOFOLINATE [Suspect]
     Dosage: 340MG/BODY=200MG/M2 ON D1
     Route: 042
     Dates: start: 20050607, end: 20050608
  6. CALCIUM LEVOFOLINATE [Suspect]
     Dosage: 350MG/BODY=205.9MG/M2
     Route: 042
     Dates: start: 20050628, end: 20050628
  7. PRIMPERAN INJ [Concomitant]
     Route: 042
     Dates: start: 20050608, end: 20050629
  8. KYTRIL [Concomitant]
     Route: 042
     Dates: start: 20050608, end: 20050608
  9. DECADRON [Concomitant]
     Route: 042
     Dates: start: 20050608, end: 20050608
  10. ROCEPHIN [Concomitant]
     Route: 042
     Dates: start: 20050608, end: 20050612

REACTIONS (6)
  - DEPRESSED LEVEL OF CONSCIOUSNESS [None]
  - HAEMOGLOBIN DECREASED [None]
  - OXYGEN SATURATION DECREASED [None]
  - PNEUMONIA [None]
  - PYREXIA [None]
  - VOMITING [None]
